FAERS Safety Report 11222631 (Version 1)
Quarter: 2015Q2

REPORT INFORMATION
  Report Type: Spontaneous
  Country: US (occurrence: US)
  Receive Date: 20150626
  Receipt Date: 20150626
  Transmission Date: 20150821
  Serious: Yes (Other)
  Sender: FDA-Public Use
  Company Number: US-ABBVIE-15P-163-1414687-00

PATIENT
  Age: 55 Year
  Sex: Male
  Weight: 81.72 kg

DRUGS (1)
  1. ANDROGEL [Suspect]
     Active Substance: TESTOSTERONE
     Indication: BLOOD TESTOSTERONE DECREASED
     Dosage: 4 PUMPS
     Route: 061

REACTIONS (3)
  - Road traffic accident [Unknown]
  - Neck injury [Recovering/Resolving]
  - Blood testosterone decreased [Not Recovered/Not Resolved]

NARRATIVE: CASE EVENT DATE: 201504
